FAERS Safety Report 8248009-4 (Version None)
Quarter: 2012Q1

REPORT INFORMATION
  Report Type: 
  Country: None (occurrence: None)
  Receive Date: 20120330
  Receipt Date: 20120315
  Transmission Date: 20120608
  Serious: Yes (Hospitalization, Other)
  Sender: FDA-Public Use
  Company Number: AU-CELGENEUS-008-20785-11100814

PATIENT
  Sex: Male

DRUGS (2)
  1. THALOMID [Suspect]
     Indication: MULTIPLE MYELOMA
     Dosage: 100 MILLIGRAM
     Route: 048
     Dates: start: 20110701
  2. THALOMID [Suspect]
     Route: 048
     Dates: start: 20110101

REACTIONS (2)
  - ORTHOSTATIC HYPOTENSION [None]
  - SLEEP APNOEA SYNDROME [None]
